FAERS Safety Report 20457596 (Version 1)
Quarter: 2022Q1

REPORT INFORMATION
  Report Type: Report from Study
  Country: ES (occurrence: ES)
  Receive Date: 20220210
  Receipt Date: 20220210
  Transmission Date: 20220423
  Serious: Yes (Other)
  Sender: FDA-Public Use
  Company Number: ES-NOVARTISPH-NVSC2022ES026306

PATIENT
  Age: 40 Year
  Sex: Male

DRUGS (2)
  1. NEORAL [Suspect]
     Active Substance: CYCLOSPORINE
     Indication: Immunosuppression
     Dosage: UNK
     Route: 065
  2. LETERMOVIR [Concomitant]
     Active Substance: LETERMOVIR
     Indication: Antiviral prophylaxis
     Dosage: 0.5 DOSAGE FORM (240 MG) ON DAY 7
     Route: 065

REACTIONS (5)
  - Hepatic failure [Recovering/Resolving]
  - Haemoperitoneum [Recovering/Resolving]
  - Renal failure [Recovering/Resolving]
  - Blood stem cell transplant failure [Recovering/Resolving]
  - Blood bilirubin increased [Recovering/Resolving]
